FAERS Safety Report 5278203-6 (Version None)
Quarter: 2007Q1

REPORT INFORMATION
  Report Type: 
  Country: None (occurrence: None)
  Receive Date: 20070328
  Receipt Date: 20070315
  Transmission Date: 20070707
  Serious: Yes (Other)
  Sender: FDA-Public Use
  Company Number: US-JNJFOC-20070303799

PATIENT
  Sex: Female

DRUGS (14)
  1. INFLIXIMAB [Suspect]
     Indication: RHEUMATOID ARTHRITIS
     Route: 042
  2. FOLIC ACID [Concomitant]
  3. FISH OIL [Concomitant]
  4. LYSINE [Concomitant]
  5. MULITVITAMIN [Concomitant]
  6. CALCIUM [Concomitant]
  7. FLAX SEED OIL [Concomitant]
  8. VITAMIN B COMPLEX CAP [Concomitant]
  9. ASCORBIC ACID [Concomitant]
  10. VITAMIN D [Concomitant]
  11. VITAMIN E [Concomitant]
  12. VITAMIN A [Concomitant]
  13. COQ10 [Concomitant]
  14. ALPHALIPOIC ACID [Concomitant]

REACTIONS (2)
  - BREAST CANCER [None]
  - BREAST CANCER METASTATIC [None]
